FAERS Safety Report 9661972 (Version 1)
Quarter: 2013Q4

REPORT INFORMATION
  Report Type: Spontaneous
  Country: US (occurrence: US)
  Receive Date: 20131031
  Receipt Date: 20131031
  Transmission Date: 20140711
  Serious: No
  Sender: FDA-Public Use
  Company Number: US-PURDUE-USA-2011-0068070

PATIENT
  Sex: Female

DRUGS (1)
  1. OXYCONTIN (NDA 22-272) [Suspect]
     Indication: NEURALGIA

REACTIONS (4)
  - Hot flush [Unknown]
  - Feeling cold [Unknown]
  - Depression [Unknown]
  - Mood swings [Unknown]
